FAERS Safety Report 15628307 (Version 1)
Quarter: 2018Q4

REPORT INFORMATION
  Report Type: Spontaneous
  Country: RU (occurrence: RU)
  Receive Date: 20181116
  Receipt Date: 20181116
  Transmission Date: 20190205
  Serious: Yes (Life-Threatening, Hospitalization)
  Sender: FDA-Public Use
  Company Number: RU-SAKK-2018SA314162AA

PATIENT
  Age: 70 Year
  Sex: Female
  Weight: 90 kg

DRUGS (6)
  1. TOUJEO [Suspect]
     Active Substance: INSULIN GLARGINE
     Dosage: 34 IU
     Route: 058
     Dates: start: 20180804, end: 20180820
  2. SIOFOR [Concomitant]
     Active Substance: METFORMIN HYDROCHLORIDE
     Route: 048
  3. GALVUS [Concomitant]
     Active Substance: VILDAGLIPTIN
     Route: 048
  4. BISOPROLOL [Concomitant]
     Active Substance: BISOPROLOL
     Route: 048
  5. HUMULIN M3 [Suspect]
     Active Substance: INSULIN HUMAN
     Dosage: 40 IU
     Route: 058
     Dates: start: 20161207, end: 20161208
  6. LORISTA [Concomitant]
     Active Substance: LOSARTAN POTASSIUM
     Route: 048

REACTIONS (5)
  - Asphyxia [Recovering/Resolving]
  - Cough [Recovering/Resolving]
  - Swelling face [Recovering/Resolving]
  - Drug ineffective [Unknown]
  - Dizziness [Recovering/Resolving]

NARRATIVE: CASE EVENT DATE: 20180804
